FAERS Safety Report 22290118 (Version 2)
Quarter: 2024Q1

REPORT INFORMATION
  Report Type: Spontaneous
  Country: US (occurrence: US)
  Receive Date: 20230505
  Receipt Date: 20240228
  Transmission Date: 20240410
  Serious: Yes (Other)
  Sender: FDA-Public Use
  Company Number: US-BRISTOL-MYERS SQUIBB COMPANY-2023-063454

PATIENT
  Age: 70 Year
  Sex: Male

DRUGS (2)
  1. POMALYST [Suspect]
     Active Substance: POMALIDOMIDE
     Indication: Plasma cell myeloma
     Dosage: 1 TIME A DAY FOR 14 DAYS ON AND 7 DAYS OFF
     Route: 048
     Dates: start: 202301
  2. POMALYST [Suspect]
     Active Substance: POMALIDOMIDE
     Dosage: FREQUENCY: TAKE 1 CAPSULE BY MOUTH ONCE DAILY ON DAYS 1-14 OF 21 DAY CYCLE
     Route: 048
     Dates: start: 202304

REACTIONS (8)
  - Acne [Unknown]
  - Peripheral swelling [Unknown]
  - Muscle spasms [Unknown]
  - Dry skin [Unknown]
  - Neutrophil count decreased [Unknown]
  - Off label use [Unknown]
  - Hernia [Recovering/Resolving]
  - Tremor [Unknown]

NARRATIVE: CASE EVENT DATE: 20240201
